FAERS Safety Report 4421025-6 (Version None)
Quarter: 2004Q3

REPORT INFORMATION
  Report Type: 
  Country: None (occurrence: None)
  Receive Date: 20040809
  Receipt Date: 20040729
  Transmission Date: 20050211
  Serious: Yes (Hospitalization, Other)
  Sender: FDA-Public Use
  Company Number: 2004-UK-00716UK

PATIENT
  Sex: Female

DRUGS (3)
  1. ZIDOVUDINE [Suspect]
     Route: 065
  2. VIRAMUNE [Suspect]
     Route: 065
  3. DIDANOSINE [Suspect]
     Route: 065

REACTIONS (2)
  - HAEMATEMESIS [None]
  - PORTAL VEIN THROMBOSIS [None]
